FAERS Safety Report 4467691-0 (Version None)
Quarter: 2004Q4

REPORT INFORMATION
  Report Type: 
  Country: None (occurrence: None)
  Receive Date: 20041001
  Receipt Date: 20040910
  Transmission Date: 20050328
  Serious: Yes (Other)
  Sender: FDA-Public Use
  Company Number: 8871

PATIENT
  Sex: Female

DRUGS (2)
  1. METHOTREXATE [Suspect]
     Indication: CROHN'S DISEASE
  2. NORAMIDOPYRINE METHANSULLFONATE SODIUM [Suspect]

REACTIONS (3)
  - BONE MARROW DEPRESSION [None]
  - DRUG INTERACTION [None]
  - PANCYTOPENIA [None]
